FAERS Safety Report 9890817 (Version 2)
Quarter: 2014Q1

REPORT INFORMATION
  Report Type: Report from Study
  Country: TH (occurrence: TH)
  Receive Date: 20140212
  Receipt Date: 20140212
  Transmission Date: 20141002
  Serious: Yes (Death)
  Sender: FDA-Public Use
  Company Number: TH-SA-2013SA114151

PATIENT
  Age: 27 Year
  Sex: Male

DRUGS (11)
  1. AFLIBERCEPT [Suspect]
     Indication: COLORECTAL CANCER METASTATIC
     Route: 041
     Dates: start: 20131028, end: 20131028
  2. FLUOROURACIL [Suspect]
     Indication: COLORECTAL CANCER METASTATIC
     Route: 040
     Dates: start: 20131028, end: 20131028
  3. FLUOROURACIL [Suspect]
     Indication: COLORECTAL CANCER METASTATIC
     Route: 041
     Dates: start: 20131028, end: 20131028
  4. IRINOTECAN [Suspect]
     Indication: COLORECTAL CANCER METASTATIC
     Route: 041
     Dates: start: 20131028, end: 20131028
  5. LEUCOVORIN [Suspect]
     Indication: COLORECTAL CANCER METASTATIC
     Route: 041
     Dates: start: 20131028, end: 20131028
  6. SEROTONIN ANTAGONISTS [Concomitant]
     Indication: PROPHYLAXIS
     Dates: start: 20131028, end: 20131028
  7. CORTICOSTEROIDS [Concomitant]
     Indication: PROPHYLAXIS
     Dates: start: 20131028, end: 20131028
  8. ANTICHOLINERGICS [Concomitant]
     Indication: PROPHYLAXIS
     Dates: start: 20131028, end: 20131028
  9. METOCLOPRAMIDE [Concomitant]
     Indication: VOMITING
     Route: 048
     Dates: start: 20131029, end: 20131030
  10. LORAZEPAM [Concomitant]
     Indication: PROPHYLAXIS
     Route: 048
     Dates: start: 20131028, end: 20131030
  11. BACLOFEN [Concomitant]
     Route: 048
     Dates: start: 20131030, end: 20131031

REACTIONS (1)
  - Febrile neutropenia [Fatal]
